FAERS Safety Report 18822414 (Version 1)
Quarter: 2021Q1

REPORT INFORMATION
  Report Type: Spontaneous
  Country: CN (occurrence: CN)
  Receive Date: 20210202
  Receipt Date: 20210202
  Transmission Date: 20210419
  Serious: Yes (Other)
  Sender: FDA-Public Use
  Company Number: CN-PFIZER INC-2021077494

PATIENT
  Age: 14 Year
  Sex: Male
  Weight: 37 kg

DRUGS (1)
  1. METHOTREXATE. [Suspect]
     Active Substance: METHOTREXATE
     Indication: CHEMOTHERAPY
     Dosage: 4500 MG, 1X/DAY
     Route: 041
     Dates: start: 20210119, end: 20210120

REACTIONS (4)
  - Flushing [Recovering/Resolving]
  - Rash [Recovering/Resolving]
  - Type IV hypersensitivity reaction [Recovering/Resolving]
  - Pruritus [Recovering/Resolving]

NARRATIVE: CASE EVENT DATE: 20210122
